FAERS Safety Report 5719763-8 (Version None)
Quarter: 2008Q2

REPORT INFORMATION
  Report Type: 
  Country: None (occurrence: None)
  Receive Date: 20080423
  Receipt Date: 20070321
  Transmission Date: 20081010
  Serious: Yes (Hospitalization)
  Sender: FDA-Public Use
  Company Number: 238664

PATIENT
  Age: 72 Year
  Sex: Male

DRUGS (3)
  1. AVASTIN [Suspect]
     Indication: COLORECTAL CANCER
     Dosage: 7.5 MG/KG, Q2W, INTRAVENOUS
     Route: 042
     Dates: start: 20070201
  2. OXALIPLATIN [Concomitant]
  3. XELODA [Concomitant]

REACTIONS (4)
  - DIARRHOEA [None]
  - NAUSEA [None]
  - NEUTROPENIA [None]
  - VOMITING [None]
